FAERS Safety Report 15181797 (Version 1)
Quarter: 2018Q3

REPORT INFORMATION
  Report Type: Spontaneous
  Country: FR (occurrence: FR)
  Receive Date: 20180723
  Receipt Date: 20180723
  Transmission Date: 20181010
  Serious: Yes (Other)
  Sender: FDA-Public Use
  Company Number: PHHY2018FR050345

PATIENT
  Age: 66 Year
  Sex: Female

DRUGS (1)
  1. EXFORGE [Suspect]
     Active Substance: AMLODIPINE BESYLATE\VALSARTAN
     Indication: HYPERTENSION
     Dosage: 1 DF, QD
     Route: 065
     Dates: start: 201804

REACTIONS (9)
  - Lip swelling [Unknown]
  - Pain in extremity [Unknown]
  - Weight decreased [Unknown]
  - Visual impairment [Unknown]
  - Lymphopenia [Unknown]
  - Confusional state [Unknown]
  - Tinnitus [Unknown]
  - Headache [Unknown]
  - Feeling hot [Unknown]
